FAERS Safety Report 5033048-7 (Version None)
Quarter: 2006Q2

REPORT INFORMATION
  Report Type: 
  Country: None (occurrence: None)
  Receive Date: 20060622
  Receipt Date: 20060612
  Transmission Date: 20061013
  Serious: Yes (Hospitalization)
  Sender: FDA-Public Use
  Company Number: US-ROCHE-451561

PATIENT
  Age: 17 Year
  Sex: Female

DRUGS (1)
  1. VALCYTE [Suspect]
     Route: 048
     Dates: start: 20060515

REACTIONS (6)
  - DEHYDRATION [None]
  - DIARRHOEA [None]
  - HEPATIC FAILURE [None]
  - RENAL FAILURE [None]
  - SHOCK [None]
  - VOMITING [None]
